APPROVED DRUG PRODUCT: PYRAZINAMIDE
Active Ingredient: PYRAZINAMIDE
Strength: 500MG
Dosage Form/Route: TABLET;ORAL
Application: A080157 | Product #001 | TE Code: AB
Applicant: NOVITIUM PHARMA LLC
Approved: Approved Prior to Jan 1, 1982 | RLD: Yes | RS: No | Type: RX